FAERS Safety Report 8234336-3 (Version None)
Quarter: 2012Q1

REPORT INFORMATION
  Report Type: 
  Country: None (occurrence: None)
  Receive Date: 20120326
  Receipt Date: 20120321
  Transmission Date: 20120608
  Serious: No
  Sender: FDA-Public Use
  Company Number: US-TEVA-329248USA

PATIENT
  Sex: Female
  Weight: 88.53 kg

DRUGS (2)
  1. PROAIR HFA [Suspect]
     Indication: ASTHMA
     Dosage: 180 MICROGRAM;
     Route: 055
     Dates: end: 20120321
  2. BUDESONIDE W/FORMOTEROL FUMARATE [Concomitant]
     Indication: ASTHMA
     Dosage: 80/4.5
     Route: 055

REACTIONS (2)
  - RETCHING [None]
  - MALAISE [None]
